FAERS Safety Report 18055198 (Version 1)
Quarter: 2020Q3

REPORT INFORMATION
  Report Type: Spontaneous
  Country: US (occurrence: US)
  Receive Date: 20200722
  Receipt Date: 20200722
  Transmission Date: 20201103
  Serious: Yes (Hospitalization)
  Sender: FDA-Public Use
  Company Number: US-MYLANLABS-2020M1065691

PATIENT
  Age: 30 Month
  Sex: Female

DRUGS (1)
  1. LORAZEPAM. [Suspect]
     Active Substance: LORAZEPAM
     Indication: SEIZURE
     Dosage: 0.05 MILLIGRAM/KILOGRAM RECEIVED TWO DOSES
     Route: 042

REACTIONS (1)
  - Drug ineffective [Unknown]
